FAERS Safety Report 18176891 (Version 4)
Quarter: 2022Q4

REPORT INFORMATION
  Report Type: Report from Study
  Country: US (occurrence: US)
  Receive Date: 20200820
  Receipt Date: 20221101
  Transmission Date: 20230113
  Serious: Yes (Hospitalization, Other)
  Sender: FDA-Public Use
  Company Number: US-TAKEDA-2018TUS028315

PATIENT
  Sex: Male

DRUGS (15)
  1. PONATINIB [Suspect]
     Active Substance: PONATINIB
     Indication: Chronic myeloid leukaemia
     Dosage: 15 MILLIGRAM, QD
     Route: 048
     Dates: start: 201609
  2. PONATINIB [Suspect]
     Active Substance: PONATINIB
     Dosage: 30 MILLIGRAM, QD
     Route: 048
  3. PONATINIB [Suspect]
     Active Substance: PONATINIB
     Dosage: 15 MILLIGRAM, QD
     Route: 048
  4. METOPROLOL SUCCINATE [Concomitant]
     Active Substance: METOPROLOL SUCCINATE
     Dosage: UNK
     Route: 065
  5. LOSARTAN POTASSIUM [Concomitant]
     Active Substance: LOSARTAN POTASSIUM
     Dosage: UNK
     Route: 065
  6. HYDROCHLOROTHIAZIDE [Concomitant]
     Active Substance: HYDROCHLOROTHIAZIDE
     Dosage: UNK
     Route: 065
  7. ALLOPURINOL [Concomitant]
     Active Substance: ALLOPURINOL
     Dosage: UNK
     Route: 065
  8. AMLODIPINE BESYLATE [Concomitant]
     Active Substance: AMLODIPINE BESYLATE
     Dosage: UNK
     Route: 065
  9. NEXIUM [Concomitant]
     Active Substance: ESOMEPRAZOLE MAGNESIUM
     Dosage: UNK
     Route: 065
  10. SILDENAFIL [Concomitant]
     Active Substance: SILDENAFIL
     Dosage: UNK
     Route: 065
  11. ASPIRIN [Concomitant]
     Active Substance: ASPIRIN
     Dosage: UNK
     Route: 065
  12. LATANOPROST [Concomitant]
     Active Substance: LATANOPROST
     Dosage: UNK
     Route: 065
  13. ZOFRAN [Concomitant]
     Active Substance: ONDANSETRON HYDROCHLORIDE
     Dosage: UNK
     Route: 065
  14. TADALAFIL [Concomitant]
     Active Substance: TADALAFIL
     Dosage: UNK
     Route: 065
  15. CLONIDINE HYDROCHLORIDE [Concomitant]
     Active Substance: CLONIDINE HYDROCHLORIDE
     Dosage: UNK

REACTIONS (42)
  - Neuropathy peripheral [Unknown]
  - Pancreatitis [Unknown]
  - Myalgia [Unknown]
  - Chronic myeloid leukaemia [Unknown]
  - Blood pressure fluctuation [Recovering/Resolving]
  - Glaucoma [Unknown]
  - Optic nerve injury [Unknown]
  - Cataract [Unknown]
  - Erectile dysfunction [Unknown]
  - Gallbladder disorder [Recovering/Resolving]
  - Pancreatic disorder [Recovering/Resolving]
  - Dehydration [Recovering/Resolving]
  - Bone pain [Recovering/Resolving]
  - Arthralgia [Unknown]
  - Cough [Unknown]
  - Pyrexia [Unknown]
  - Fatigue [Unknown]
  - Constipation [Unknown]
  - Blood sodium decreased [Unknown]
  - Neck pain [Unknown]
  - Viral infection [Unknown]
  - Cognitive disorder [Unknown]
  - Thyroxine decreased [Unknown]
  - Blood thyroid stimulating hormone decreased [Unknown]
  - Hypometabolism [Unknown]
  - Weight increased [Unknown]
  - Prostatic disorder [Unknown]
  - Osteoarthritis [Unknown]
  - Venomous sting [Unknown]
  - Flushing [Unknown]
  - Cold sweat [Unknown]
  - Red cell distribution width increased [Unknown]
  - Eosinophil count increased [Unknown]
  - Polymerase chain reaction positive [Unknown]
  - Herpes zoster [Unknown]
  - Stress [Unknown]
  - Varicella [Unknown]
  - Myopia [Unknown]
  - Drug ineffective [Unknown]
  - COVID-19 [Unknown]
  - Sneezing [Unknown]
  - Intentional dose omission [Unknown]
